FAERS Safety Report 12079163 (Version 1)
Quarter: 2016Q1

REPORT INFORMATION
  Report Type: Spontaneous
  Country: NL (occurrence: NL)
  Receive Date: 20160216
  Receipt Date: 20160216
  Transmission Date: 20160526
  Serious: Yes (Life-Threatening)
  Sender: FDA-Public Use
  Company Number: NL-009507513-1602NLD005711

PATIENT
  Age: 68 Year
  Sex: Female
  Weight: 60 kg

DRUGS (5)
  1. METOPROLOL. [Concomitant]
     Active Substance: METOPROLOL
     Dosage: UNK
     Route: 048
     Dates: start: 201408
  2. ASCAL CARDIO [Concomitant]
     Active Substance: CARBASALATE
     Dosage: UNK
     Route: 048
     Dates: start: 201408
  3. RENVELA [Concomitant]
     Active Substance: SEVELAMER CARBONATE
     Dosage: UNK
     Route: 048
     Dates: start: 201408
  4. EZETROL [Suspect]
     Active Substance: EZETIMIBE
     Indication: HYPERCHLORAEMIA
     Route: 048
     Dates: start: 20160105
  5. PANTOPRAZOLE [Concomitant]
     Active Substance: PANTOPRAZOLE SODIUM
     Dosage: UNK
     Route: 048
     Dates: start: 201408

REACTIONS (5)
  - Diaphragmatic disorder [Unknown]
  - Chest discomfort [Unknown]
  - Neck pain [Unknown]
  - Food aversion [Unknown]
  - Nausea [Unknown]

NARRATIVE: CASE EVENT DATE: 20160129
